FAERS Safety Report 8883377 (Version 4)
Quarter: 2014Q1

REPORT INFORMATION
  Report Type: Spontaneous
  Country: US (occurrence: US)
  Receive Date: 20121102
  Receipt Date: 20140221
  Transmission Date: 20141002
  Serious: Yes (Other)
  Sender: FDA-Public Use
  Company Number: US-009507513-1210USA013152

PATIENT
  Sex: Male
  Weight: 97.52 kg

DRUGS (3)
  1. PROPECIA [Suspect]
     Indication: ALOPECIA
     Dosage: 1 MG, UNK
     Route: 048
     Dates: start: 19990403, end: 19991003
  2. PROPECIA [Suspect]
     Dosage: 1 MG, UNK
     Route: 048
     Dates: start: 20050702, end: 20051105
  3. CLARINEX [Concomitant]
     Indication: HYPERSENSITIVITY
     Dosage: UNK
     Dates: start: 20050511

REACTIONS (24)
  - Rotator cuff repair [Unknown]
  - Cognitive disorder [Not Recovered/Not Resolved]
  - Hypogonadism [Unknown]
  - Blood testosterone decreased [Unknown]
  - Asthma [Unknown]
  - Essential hypertension [Unknown]
  - Chronic obstructive pulmonary disease [Not Recovered/Not Resolved]
  - Gastrooesophageal reflux disease [Unknown]
  - Hypothyroidism [Unknown]
  - Blood cholesterol increased [Unknown]
  - Blood potassium decreased [Unknown]
  - Peripheral vascular disorder [Unknown]
  - Constipation [Unknown]
  - Haemorrhoids [Unknown]
  - Hernia repair [Unknown]
  - Appendicectomy [Unknown]
  - Nasal operation [Unknown]
  - Adenotonsillectomy [Unknown]
  - Knee operation [Unknown]
  - Organic erectile dysfunction [Unknown]
  - Prostatomegaly [Unknown]
  - Benign prostatic hyperplasia [Unknown]
  - Autonomic neuropathy [Unknown]
  - Sexual dysfunction [Not Recovered/Not Resolved]
